FAERS Safety Report 13946340 (Version 2)
Quarter: 2017Q4

REPORT INFORMATION
  Report Type: Report from Study
  Country: IT (occurrence: IT)
  Receive Date: 20170907
  Receipt Date: 20171017
  Transmission Date: 20180320
  Serious: Yes (Hospitalization)
  Sender: FDA-Public Use
  Company Number: IT-VIFOR (INTERNATIONAL) INC.-VIT-2017-07876

PATIENT
  Age: 75 Year
  Sex: Male

DRUGS (7)
  1. TRENTAL [Concomitant]
     Active Substance: PENTOXIFYLLINE
     Route: 048
     Dates: start: 20161024
  2. CLOPIDOGREL [Concomitant]
     Active Substance: CLOPIDOGREL BISULFATE
     Route: 048
     Dates: start: 20161024
  3. PANTOPRAZOLE SODIUM SESQUIHYDRATE [Concomitant]
     Active Substance: PANTOPRAZOLE SODIUM
     Route: 048
     Dates: start: 20161024
  4. VELPHORO [Suspect]
     Active Substance: FERRIC OXYHYDROXIDE
     Indication: HYPERPHOSPHATAEMIA
     Route: 048
     Dates: start: 20170609
  5. VELPHORO [Suspect]
     Active Substance: FERRIC OXYHYDROXIDE
     Route: 048
     Dates: start: 20170714
  6. CARDIOASPIRINA [Concomitant]
     Active Substance: ASPIRIN
     Indication: HOSPITALISATION
     Dates: start: 20170712
  7. CARDIOASPIRIN [Concomitant]
     Active Substance: ASPIRIN

REACTIONS (2)
  - Irritable bowel syndrome [Recovering/Resolving]
  - Diarrhoea [Recovering/Resolving]

NARRATIVE: CASE EVENT DATE: 2017
